FAERS Safety Report 8780332 (Version 1)
Quarter: 2012Q4

REPORT INFORMATION
  Report Type: Spontaneous
  Country: US (occurrence: None)
  Receive Date: 20120905
  Receipt Date: 20120905
  Transmission Date: 20130627
  Serious: Yes (Disabling, Other)
  Sender: FDA-Public Use
  Company Number: None

PATIENT
  Age: 64 Year
  Sex: Female
  Weight: 70.31 kg

DRUGS (2)
  1. LOSARTAN [Suspect]
     Indication: DRUG THERAPY CHANGED
     Dosage: 1/day
     Route: 048
     Dates: start: 201110
  2. IRBESARTAN [Suspect]
     Indication: DRUG THERAPY CHANGED
     Dosage: 1/day
     Route: 048
     Dates: start: 201205

REACTIONS (3)
  - Arthritis [None]
  - Pain [None]
  - Product substitution issue [None]
